FAERS Safety Report 8418202-6 (Version None)
Quarter: 2012Q2

REPORT INFORMATION
  Report Type: 
  Country: None (occurrence: None)
  Receive Date: 20120323
  Receipt Date: 20111223
  Transmission Date: 20120825
  Serious: Yes (Other)
  Sender: FDA-Public Use
  Company Number: 163-21880-11022904

PATIENT
  Age: 85 Year
  Sex: Male

DRUGS (6)
  1. REVLIMID [Suspect]
  2. REVLIMID [Suspect]
     Indication: MULTIPLE MYELOMA
     Dosage: 25 MG, DAILY X 21 DAYS, OFF 7 DAYS, PO ; 15 MG, 1 IN 1 D, PO
     Route: 048
     Dates: start: 20111101
  3. REVLIMID [Suspect]
     Indication: MULTIPLE MYELOMA
     Dosage: 25 MG, DAILY X 21 DAYS, OFF 7 DAYS, PO ; 15 MG, 1 IN 1 D, PO
     Route: 048
     Dates: start: 20101029
  4. REVLIMID [Suspect]
  5. WARFARIN SODIUM [Concomitant]
  6. REVLIMID [Suspect]

REACTIONS (5)
  - FATIGUE [None]
  - THROMBOSIS [None]
  - OEDEMA PERIPHERAL [None]
  - PERIORBITAL OEDEMA [None]
  - SPINAL COMPRESSION FRACTURE [None]
